FAERS Safety Report 5380557-7 (Version None)
Quarter: 2007Q3

REPORT INFORMATION
  Report Type: 
  Country: None (occurrence: None)
  Receive Date: 20070703
  Receipt Date: 20070629
  Transmission Date: 20080115
  Serious: No
  Sender: FDA-Public Use
  Company Number: 2007-160262-NL

PATIENT
  Age: 58 Year

DRUGS (3)
  1. MIRTAZAPINE [Suspect]
     Indication: DEPRESSION
     Dosage: 30 MG ORAL
     Route: 048
     Dates: start: 20070503, end: 20070513
  2. LERCANIDIPINE [Concomitant]
  3. MICARDIS HCT [Concomitant]

REACTIONS (2)
  - PHOTOPSIA [None]
  - VISUAL DISTURBANCE [None]
